FAERS Safety Report 18115915 (Version 2)
Quarter: 2020Q3

REPORT INFORMATION
  Report Type: Report from Study
  Country: US (occurrence: US)
  Receive Date: 20200805
  Receipt Date: 20200904
  Transmission Date: 20201103
  Serious: Yes (Death)
  Sender: FDA-Public Use
  Company Number: US-ASTRAZENECA-2020SE96773

PATIENT
  Sex: Female
  Weight: 89 kg

DRUGS (14)
  1. CALQUENCE [Suspect]
     Active Substance: ACALABRUTINIB
     Indication: NEOPLASM MALIGNANT
     Route: 048
     Dates: start: 20200325, end: 20200609
  2. ACYCLOVIR. [Concomitant]
     Active Substance: ACYCLOVIR
  3. LISINOPRIL. [Suspect]
     Active Substance: LISINOPRIL
     Dosage: UNKNOWN
     Route: 048
  4. ADDERALL [Concomitant]
     Active Substance: AMPHETAMINE ASPARTATE\AMPHETAMINE SULFATE\DEXTROAMPHETAMINE SACCHARATE\DEXTROAMPHETAMINE SULFATE
  5. ALLOPURINOL. [Concomitant]
     Active Substance: ALLOPURINOL
  6. VENETOCLAX. [Concomitant]
     Active Substance: VENETOCLAX
     Indication: MANTLE CELL LYMPHOMA
     Dates: start: 20200603
  7. CALQUENCE [Suspect]
     Active Substance: ACALABRUTINIB
     Indication: MANTLE CELL LYMPHOMA
     Route: 048
     Dates: start: 20200325, end: 20200609
  8. VENLAFAXINE [Concomitant]
     Active Substance: VENLAFAXINE HYDROCHLORIDE
  9. AMITRIPTYLINE [Concomitant]
     Active Substance: AMITRIPTYLINE
  10. METFORMIN [Concomitant]
     Active Substance: METFORMIN HYDROCHLORIDE
  11. SYNTHROID [Concomitant]
     Active Substance: LEVOTHYROXINE SODIUM
  12. NITROGLYCERIN. [Concomitant]
     Active Substance: NITROGLYCERIN
  13. NIZATIDINE. [Concomitant]
     Active Substance: NIZATIDINE
  14. ZOFRAN [Concomitant]
     Active Substance: ONDANSETRON HYDROCHLORIDE

REACTIONS (2)
  - Drug hypersensitivity [Unknown]
  - Malignant neoplasm progression [Fatal]
